FAERS Safety Report 4598081-8 (Version None)
Quarter: 2005Q1

REPORT INFORMATION
  Report Type: 
  Country: None (occurrence: None)
  Receive Date: 20050304
  Receipt Date: 20050216
  Transmission Date: 20050727
  Serious: Yes (Disabling)
  Sender: FDA-Public Use
  Company Number: US-ABBOTT-05P-163-0290876-00

PATIENT
  Sex: Female
  Weight: 104.5 kg

DRUGS (4)
  1. DEPAKOTE [Suspect]
     Indication: DEPRESSION
     Route: 048
     Dates: start: 20010701
  2. LORAZEPAM [Concomitant]
     Indication: AGITATION
     Route: 048
  3. QUETIAPINE FUMARATE [Concomitant]
     Indication: ABNORMAL BEHAVIOUR
     Route: 048
  4. IBUPROFEN [Concomitant]
     Indication: PAIN
     Route: 048
     Dates: start: 20050101

REACTIONS (2)
  - ARTHRALGIA [None]
  - GAIT DISTURBANCE [None]
